FAERS Safety Report 8790479 (Version 1)
Quarter: 2012Q4

REPORT INFORMATION
  Report Type: Spontaneous
  Country: US (occurrence: None)
  Receive Date: 20120911
  Receipt Date: 20120911
  Transmission Date: 20130627
  Serious: Yes (Life-Threatening, Other)
  Sender: FDA-Public Use
  Company Number: None

PATIENT
  Age: 7 Year
  Sex: Male
  Weight: 23.59 kg

DRUGS (1)
  1. ONFI [Suspect]
     Indication: MYOCLONIC EPILEPSY
     Route: 048
     Dates: start: 20120903, end: 20120904

REACTIONS (3)
  - Abnormal behaviour [None]
  - Convulsion [None]
  - Product formulation issue [None]
